FAERS Safety Report 9198757 (Version 3)
Quarter: 2017Q3

REPORT INFORMATION
  Report Type: Spontaneous
  Country: CA (occurrence: CA)
  Receive Date: 20130329
  Receipt Date: 20170926
  Transmission Date: 20171128
  Serious: Yes (Hospitalization, Other)
  Sender: FDA-Public Use
  Company Number: CA-PFIZER INC-2013097577

PATIENT
  Age: 49 Year
  Sex: Male

DRUGS (3)
  1. ZANTAC [Concomitant]
     Active Substance: RANITIDINE HYDROCHLORIDE
     Dosage: UNK
  2. CELEBREX [Suspect]
     Active Substance: CELECOXIB
     Dosage: 200 MG, UNK
     Dates: start: 20020426, end: 20040913
  3. LIPITOR [Concomitant]
     Active Substance: ATORVASTATIN CALCIUM
     Dosage: UNK

REACTIONS (10)
  - Cerebellar infarction [Unknown]
  - Nausea [Unknown]
  - Coordination abnormal [Unknown]
  - Facial paralysis [Unknown]
  - Ischaemic stroke [Unknown]
  - Vomiting [Unknown]
  - Eyelid ptosis [Unknown]
  - Dysarthria [Unknown]
  - Vertigo [Unknown]
  - Diplopia [Unknown]

NARRATIVE: CASE EVENT DATE: 200407
